FAERS Safety Report 4835115-7 (Version None)
Quarter: 2005Q4

REPORT INFORMATION
  Report Type: 
  Country: None (occurrence: None)
  Receive Date: 20051122
  Receipt Date: 20031215
  Transmission Date: 20060501
  Serious: Yes (Death)
  Sender: FDA-Public Use
  Company Number: SE-BOEHRINGER INGELHEIM PHARMACEUTICALS, INC.-2003-SW-00430SW

PATIENT
  Age: 78 Year
  Sex: Male

DRUGS (4)
  1. PERSANTIN [Suspect]
     Indication: TRANSIENT ISCHAEMIC ATTACK
     Dates: start: 19930101, end: 20031214
  2. LASIX [Concomitant]
  3. TROMBYL [Concomitant]
  4. ZINNAT [Concomitant]

REACTIONS (4)
  - ACIDOSIS [None]
  - CARDIOGENIC SHOCK [None]
  - CIRCULATORY COLLAPSE [None]
  - SYNCOPE [None]
